FAERS Safety Report 19266545 (Version 2)
Quarter: 2021Q2

REPORT INFORMATION
  Report Type: Report from Study
  Country: GB (occurrence: GB)
  Receive Date: 20210518
  Receipt Date: 20210607
  Transmission Date: 20210717
  Serious: Yes (Hospitalization)
  Sender: FDA-Public Use
  Company Number: GB-NOVOPROD-788802

PATIENT
  Age: 58 Year
  Sex: Female
  Weight: 90.2 kg

DRUGS (8)
  1. MOVELAT [MUCOPOLYSACCHARIDE POLYSULFURIC ACID ESTER;SALICYLIC ACID] [Concomitant]
     Route: 062
  2. LIRAGLUTIDE 6MG/ML PDS290 [Suspect]
     Active Substance: LIRAGLUTIDE
     Indication: OBESITY
     Dosage: 3.00 MG
     Route: 058
     Dates: start: 20191209, end: 20200724
  3. MIRABEGRON [Concomitant]
     Active Substance: MIRABEGRON
     Dosage: 25 MG, QD AT NIGHT
     Dates: start: 20200901, end: 20200901
  4. MIRABEGRON [Concomitant]
     Active Substance: MIRABEGRON
     Dosage: 25 MG, QD NIGHT
     Route: 048
     Dates: start: 20200905
  5. MACROGOL [Concomitant]
     Active Substance: POLYETHYLENE GLYCOLS
     Dosage: SACHETS NPF SUGAR FREE ONE BD
     Route: 048
  6. HYPROMELLOSE [Concomitant]
     Active Substance: HYPROMELLOSES
     Dosage: UNK, PRN
  7. MIRABEGRON [Concomitant]
     Active Substance: MIRABEGRON
     Dosage: 25 MG, QD MORNING
     Route: 048
     Dates: start: 20200904, end: 20200904
  8. OMEPRAZOLE. [Concomitant]
     Active Substance: OMEPRAZOLE
     Dosage: 20 MG, QD
     Dates: start: 20200904, end: 20200904

REACTIONS (2)
  - Bile duct stone [Recovered/Resolved]
  - Cholangitis [Recovered/Resolved]

NARRATIVE: CASE EVENT DATE: 20200829
